FAERS Safety Report 13367464 (Version 1)
Quarter: 2017Q1

REPORT INFORMATION
  Report Type: Other
  Country: US (occurrence: US)
  Receive Date: 20170324
  Receipt Date: 20170324
  Transmission Date: 20170429
  Serious: Yes (Hospitalization)
  Sender: FDA-Public Use
  Company Number: US-BRECKENRIDGE PHARMACEUTICAL, INC.-1064608

PATIENT
  Age: 73 Year
  Sex: Female

DRUGS (2)
  1. LEVETIRACETAM. [Suspect]
     Active Substance: LEVETIRACETAM
  2. VALPROIC ACID. [Suspect]
     Active Substance: VALPROIC ACID

REACTIONS (1)
  - Acute generalised exanthematous pustulosis [Recovering/Resolving]
